FAERS Safety Report 8108549-5 (Version None)
Quarter: 2012Q1

REPORT INFORMATION
  Report Type: 
  Country: None (occurrence: None)
  Receive Date: 20120202
  Receipt Date: 20120130
  Transmission Date: 20120608
  Serious: Yes (Hospitalization)
  Sender: FDA-Public Use
  Company Number: PHEH2012US002640

PATIENT
  Sex: Male

DRUGS (7)
  1. CALCIUM [Concomitant]
     Dosage: 600 MG, BID
  2. ASPIRIN [Concomitant]
     Dosage: 325 MG, QD
  3. METAMUCIL-2 [Concomitant]
     Dosage: 1 TSP, BID
  4. AQUAVITE [Concomitant]
  5. VITAMIN D [Concomitant]
     Dosage: UNK UKN, BID
  6. RECLAST [Suspect]
     Dosage: UNK UKN, UNK
     Route: 042
  7. CRESTOR [Concomitant]
     Dosage: 2.5 MG, QD

REACTIONS (3)
  - SYNCOPE [None]
  - PYREXIA [None]
  - ASTHENIA [None]
